FAERS Safety Report 23264328 (Version 1)
Quarter: 2023Q4

REPORT INFORMATION
  Report Type: Spontaneous
  Country: US (occurrence: US)
  Receive Date: 20231205
  Receipt Date: 20231205
  Transmission Date: 20240110
  Serious: No
  Sender: FDA-Public Use
  Company Number: US-PFIZER INC-PV202300053221

PATIENT
  Age: 70 Year
  Sex: Male
  Weight: 128.34 kg

DRUGS (7)
  1. BRAFTOVI [Suspect]
     Active Substance: ENCORAFENIB
     Indication: Metastatic malignant melanoma
     Dosage: 450 MG, DAILY
     Route: 048
  2. BRAFTOVI [Suspect]
     Active Substance: ENCORAFENIB
     Dosage: 300 MG, DAILY (TAKE 6 CAPSULES)
     Route: 048
     Dates: start: 202301, end: 2023
  3. BRAFTOVI [Suspect]
     Active Substance: ENCORAFENIB
     Dosage: 300 MG, DAILY (TAKE 6 CAPSULES)
     Route: 048
     Dates: start: 20230328
  4. BRAFTOVI [Suspect]
     Active Substance: ENCORAFENIB
     Dosage: 300 MG, DAILY (TAKE 6 CAPSULES)
     Route: 048
     Dates: start: 20230410
  5. MEKTOVI [Suspect]
     Active Substance: BINIMETINIB
     Dosage: 45 MG, 2X/DAY (TAKE 45 MG (3 TABLETS)
     Route: 048
     Dates: start: 202301, end: 2023
  6. MEKTOVI [Suspect]
     Active Substance: BINIMETINIB
     Dosage: 45 MG, 2X/DAY (TAKE 45 MG (3 TABLETS)
     Route: 048
     Dates: start: 20230328
  7. MEKTOVI [Suspect]
     Active Substance: BINIMETINIB
     Dosage: 45 MG, 2X/DAY (TAKE 45 MG (3 TABLETS)
     Route: 048
     Dates: start: 20230410

REACTIONS (1)
  - Anaemia [Unknown]
